FAERS Safety Report 7428615-7 (Version None)
Quarter: 2011Q2

REPORT INFORMATION
  Report Type: 
  Country: None (occurrence: None)
  Receive Date: 20110421
  Receipt Date: 20110330
  Transmission Date: 20111010
  Serious: Yes (Other)
  Sender: FDA-Public Use
  Company Number: US-BAYER-200934258NA

PATIENT
  Age: 71 Year
  Sex: Female
  Weight: 63 kg

DRUGS (13)
  1. TRASYLOL [Suspect]
     Indication: CORONARY ARTERY BYPASS
     Dosage: 1 ML, TEST DOSE
     Route: 042
     Dates: start: 20030616, end: 20030616
  2. TRASYLOL [Suspect]
     Dosage: LOADING DOSE OF 200ML FOLLOWED BY INFUSION OF 50ML/HR
     Route: 042
     Dates: start: 20030616, end: 20030616
  3. DIOVAN HCT [Concomitant]
     Dosage: 160/12.5 DAILY
     Route: 048
  4. NITROGLYCERIN [Concomitant]
     Dosage: DRIP RATE VARIABLE
     Dates: start: 20030616
  5. LIPITOR [Concomitant]
     Dosage: 20 MG, QD
     Route: 048
  6. HEPARIN [Concomitant]
     Dosage: UNK
     Dates: start: 20030616
  7. GLUCOTROL XL [Concomitant]
     Dosage: 10 MG, QD
     Route: 048
  8. LASIX [Concomitant]
     Dosage: 40 MG, QD
     Route: 048
  9. TOPROL-XL [Concomitant]
     Dosage: 100 MG, QD
     Route: 048
  10. AVANDIA [Concomitant]
     Dosage: 8 MG, QD
     Route: 048
  11. LOTENSIN [Concomitant]
     Dosage: 80 MG, QD
     Route: 048
  12. ACETYLSALICYLIC ACID SRT [Concomitant]
     Dosage: 81 MG, QD
     Route: 048
  13. LASIX [Concomitant]
     Dosage: 60 MG, UNK
     Dates: start: 20030616

REACTIONS (12)
  - EMOTIONAL DISTRESS [None]
  - FEAR [None]
  - PAIN [None]
  - MULTI-ORGAN FAILURE [None]
  - NERVOUSNESS [None]
  - RENAL INJURY [None]
  - UNEVALUABLE EVENT [None]
  - ANHEDONIA [None]
  - ANXIETY [None]
  - DEPRESSION [None]
  - RENAL FAILURE [None]
  - INJURY [None]
